FAERS Safety Report 13805159 (Version 2)
Quarter: 2017Q3

REPORT INFORMATION
  Report Type: Spontaneous
  Country: IT (occurrence: IT)
  Receive Date: 20170728
  Receipt Date: 20170808
  Transmission Date: 20171127
  Serious: Yes (Hospitalization, Other)
  Sender: FDA-Public Use
  Company Number: IT-BAYER-2017-140935

PATIENT
  Age: 2 Year
  Sex: Male
  Weight: 12.5 kg

DRUGS (1)
  1. ACETYLSALICYLIC ACID({=100 MG) [Suspect]
     Active Substance: ASPIRIN
     Indication: NASOPHARYNGITIS
     Dosage: 100 MG, QD

REACTIONS (1)
  - Linear IgA disease [None]
